FAERS Safety Report 4336634-2 (Version None)
Quarter: 2004Q2

REPORT INFORMATION
  Report Type: 
  Country: None (occurrence: None)
  Receive Date: 20040408
  Receipt Date: 20040331
  Transmission Date: 20050107
  Serious: Yes (Other)
  Sender: FDA-Public Use
  Company Number: 200411566BCC

PATIENT
  Age: 68 Year
  Sex: Female
  Weight: 78.4723 kg

DRUGS (1)
  1. ORIGINAL BAYER CAPLETS (ACETYLSALICYLIC ACID) [Suspect]
     Dosage: 325 MG, QD, ORAL
     Route: 048
     Dates: start: 20040201

REACTIONS (1)
  - AMNESIA [None]
